FAERS Safety Report 6553770-0 (Version None)
Quarter: 2010Q1

REPORT INFORMATION
  Report Type: 
  Country: None (occurrence: None)
  Receive Date: 20100125
  Receipt Date: 20100112
  Transmission Date: 20100710
  Serious: Yes (Disabling)
  Sender: FDA-Public Use
  Company Number: 2010AL000227

PATIENT
  Sex: Female

DRUGS (1)
  1. METOCLOPRAMIDE [Suspect]
     Dosage: PO
     Route: 048
     Dates: start: 20060201, end: 20080801

REACTIONS (10)
  - ACTIVITIES OF DAILY LIVING IMPAIRED [None]
  - ANXIETY [None]
  - DEFORMITY [None]
  - DISABILITY [None]
  - ECONOMIC PROBLEM [None]
  - IMPAIRED WORK ABILITY [None]
  - NERVOUS SYSTEM DISORDER [None]
  - PAIN [None]
  - TARDIVE DYSKINESIA [None]
  - UNEVALUABLE EVENT [None]
